FAERS Safety Report 7304816-3 (Version None)
Quarter: 2011Q1

REPORT INFORMATION
  Report Type: 
  Country: None (occurrence: None)
  Receive Date: 20110222
  Receipt Date: 20110208
  Transmission Date: 20110831
  Serious: Yes (Death)
  Sender: FDA-Public Use
  Company Number: US-CELGENEUS-163-21880-11021393

PATIENT
  Age: 77 Year
  Sex: Male

DRUGS (8)
  1. SIMVASTATIN [Concomitant]
     Route: 065
  2. METOLAZONE [Concomitant]
     Route: 065
  3. DEXAMETHASONE [Concomitant]
     Route: 065
  4. REVLIMID [Suspect]
     Route: 048
     Dates: start: 20080301, end: 20090201
  5. COLCHICINE [Concomitant]
     Route: 065
  6. REVLIMID [Suspect]
     Indication: MULTIPLE MYELOMA
     Route: 048
     Dates: start: 20100201
  7. AMLODIPINE [Concomitant]
     Route: 065
  8. ZYMAR [Concomitant]
     Route: 065

REACTIONS (2)
  - NO THERAPEUTIC RESPONSE [None]
  - DEATH [None]
